FAERS Safety Report 17061346 (Version 2)
Quarter: 2019Q4

REPORT INFORMATION
  Report Type: Spontaneous
  Country: US (occurrence: US)
  Receive Date: 20191121
  Receipt Date: 20191220
  Transmission Date: 20200122
  Serious: Yes (Other)
  Sender: FDA-Public Use
  Company Number: US-JNJFOC-20191121628

PATIENT
  Age: 70 Year
  Sex: Female
  Weight: 88.98 kg

DRUGS (2)
  1. RIVAROXABAN [Suspect]
     Active Substance: RIVAROXABAN
     Indication: THROMBOSIS
     Route: 048
     Dates: start: 20191014, end: 201911
  2. RIVAROXABAN [Suspect]
     Active Substance: RIVAROXABAN
     Route: 048
     Dates: start: 201911

REACTIONS (4)
  - Knee arthroplasty [Unknown]
  - Nasopharyngitis [Not Recovered/Not Resolved]
  - Nerve injury [Unknown]
  - Arthritis [Unknown]

NARRATIVE: CASE EVENT DATE: 2019
